FAERS Safety Report 23787133 (Version 1)
Quarter: 2024Q2

REPORT INFORMATION
  Report Type: Spontaneous
  Country: FR (occurrence: FR)
  Receive Date: 20240426
  Receipt Date: 20240426
  Transmission Date: 20240716
  Serious: Yes (Other)
  Sender: FDA-Public Use
  Company Number: FR-SUN PHARMACEUTICAL INDUSTRIES LTD-2024RR-444150

PATIENT
  Age: 82 Year
  Sex: Female
  Weight: 54 kg

DRUGS (1)
  1. OXALIPLATIN [Suspect]
     Active Substance: OXALIPLATIN
     Indication: Rectosigmoid cancer metastatic
     Dosage: UNK, PRESCRIBED DOSE: 66 MG
     Route: 051
     Dates: start: 20231114, end: 20231114

REACTIONS (1)
  - Anaphylactic transfusion reaction [Recovered/Resolved]

NARRATIVE: CASE EVENT DATE: 20231114
